FAERS Safety Report 24190127 (Version 1)
Quarter: 2024Q3

REPORT INFORMATION
  Report Type: Spontaneous
  Country: US (occurrence: US)
  Receive Date: 20240808
  Receipt Date: 20240808
  Transmission Date: 20241016
  Serious: No
  Sender: SANOFI AVENTIS
  Company Number: US-SA-SAC20240802000747

PATIENT
  Age: 63 Year
  Sex: Female

DRUGS (2)
  1. DUPIXENT [Suspect]
     Active Substance: DUPILUMAB
     Indication: Asthma
     Dosage: 400 MG, 1X
     Route: 058
     Dates: start: 202407, end: 202407
  2. DUPIXENT [Suspect]
     Active Substance: DUPILUMAB
     Indication: Eczema
     Dosage: 200 MG, QOW
     Route: 058

REACTIONS (8)
  - Malaise [Unknown]
  - Muscle tightness [Unknown]
  - Diarrhoea [Unknown]
  - Headache [Unknown]
  - Ocular discomfort [Unknown]
  - Bruxism [Unknown]
  - Migraine [Unknown]
  - Hangover [Unknown]

NARRATIVE: CASE EVENT DATE: 20240729
